FAERS Safety Report 11474464 (Version 1)
Quarter: 2015Q3

REPORT INFORMATION
  Report Type: Spontaneous
  Country: US (occurrence: None)
  Receive Date: 20150908
  Receipt Date: 20150908
  Transmission Date: 20151125
  Serious: Yes (Life-Threatening, Other)
  Sender: FDA-Public Use
  Company Number: None

PATIENT
  Age: 42 Year
  Sex: Female
  Weight: 63.05 kg

DRUGS (8)
  1. VITAMINS [Concomitant]
     Active Substance: VITAMINS
  2. ANTIDEPRESSANTS [Concomitant]
     Active Substance: UNSPECIFIED INGREDIENT
  3. SLEEP MEDICATIONS [Concomitant]
  4. MULTIVITAMINS [Concomitant]
     Active Substance: VITAMINS
  5. MIRENA [Suspect]
     Active Substance: LEVONORGESTREL
  6. THYROID MEDICATIONS [Concomitant]
  7. STEROID INHALERS [Concomitant]
  8. ALLERGY MEDICATIONS [Concomitant]
     Active Substance: UNSPECIFIED INGREDIENT

REACTIONS (1)
  - Suicide attempt [None]

NARRATIVE: CASE EVENT DATE: 20150822
